FAERS Safety Report 8779578 (Version 5)
Quarter: 2012Q4

REPORT INFORMATION
  Report Type: 
  Country: US (occurrence: US)
  Receive Date: 20120912
  Receipt Date: 20121203
  Transmission Date: 20130627
  Serious: Yes (Other)
  Sender: FDA-Public Use
  Company Number: US-PFIZER INC-2012221328

PATIENT
  Age: 77 Year
  Sex: Male

DRUGS (2)
  1. INLYTA [Suspect]
     Indication: CARCINOMA KIDNEY
     Dosage: 5 mg, 2x/day
     Route: 048
     Dates: start: 20120419
  2. INLYTA [Suspect]
     Dosage: 5 mg, 2x/day
     Route: 048
     Dates: start: 20120911

REACTIONS (1)
  - Pneumonia [Unknown]
